FAERS Safety Report 5684759-1 (Version None)
Quarter: 2008Q1

REPORT INFORMATION
  Report Type: 
  Country: None (occurrence: None)
  Receive Date: 20080328
  Receipt Date: 20070829
  Transmission Date: 20080703
  Serious: No
  Sender: FDA-Public Use
  Company Number: US-BRISTOL-MYERS SQUIBB COMPANY-13892658

PATIENT
  Sex: Male
  Weight: 70 kg

DRUGS (1)
  1. ERBITUX [Suspect]

REACTIONS (1)
  - DERMATITIS ACNEIFORM [None]
